FAERS Safety Report 25383688 (Version 1)
Quarter: 2025Q2

REPORT INFORMATION
  Report Type: Spontaneous
  Country: US (occurrence: US)
  Receive Date: 20250602
  Receipt Date: 20250602
  Transmission Date: 20250716
  Serious: Yes (Hospitalization)
  Sender: Phathom Pharmaceuticals
  Company Number: US-PHATHOM PHARMACEUTICALS INC.-2025PHT01217

PATIENT
  Age: 78 Year
  Sex: Male

DRUGS (13)
  1. VOQUEZNA [Suspect]
     Active Substance: VONOPRAZAN FUMARATE
     Indication: Gastrooesophageal reflux disease
     Dosage: 10 MG, 1X/DAY
     Route: 048
     Dates: start: 20250502, end: 202505
  2. CLEARLAX [Concomitant]
     Active Substance: POLYETHYLENE GLYCOL 3350
  3. GASGONE [Concomitant]
  4. GABAPENTIN [Concomitant]
     Active Substance: GABAPENTIN
  5. CALCIUM CARBONATE\SODIUM ALGINATE [Concomitant]
     Active Substance: CALCIUM CARBONATE\SODIUM ALGINATE
  6. ATORVASTATIN [Concomitant]
     Active Substance: ATORVASTATIN
  7. FAMOTIDINE [Concomitant]
     Active Substance: FAMOTIDINE
  8. MESALAMINE [Concomitant]
     Active Substance: MESALAMINE
  9. LANSOPRAZOLE [Concomitant]
     Active Substance: LANSOPRAZOLE
  10. BRILINTA [Concomitant]
     Active Substance: TICAGRELOR
  11. AMIODARONE [Concomitant]
     Active Substance: AMIODARONE
  12. CARVEDILOL [Concomitant]
     Active Substance: CARVEDILOL
  13. ENTRESTO [Concomitant]
     Active Substance: SACUBITRIL\VALSARTAN

REACTIONS (3)
  - Pneumonia [Unknown]
  - Musculoskeletal pain [Unknown]
  - Arthralgia [Unknown]

NARRATIVE: CASE EVENT DATE: 20250501
